FAERS Safety Report 4960114-4 (Version None)
Quarter: 2006Q1

REPORT INFORMATION
  Report Type: 
  Country: None (occurrence: None)
  Receive Date: 20060328
  Receipt Date: 20060314
  Transmission Date: 20060701
  Serious: Yes (Hospitalization)
  Sender: FDA-Public Use
  Company Number: AND_0294_2006

PATIENT
  Age: 87 Year
  Sex: Female

DRUGS (6)
  1. ALTOPREV [Suspect]
     Dosage: 60 MG
     Dates: end: 20051101
  2. LYRICA [Concomitant]
  3. COZAAR [Concomitant]
  4. POTASSIUM [Concomitant]
  5. BUMEX [Concomitant]
  6. ASPIRIN [Concomitant]

REACTIONS (8)
  - ABASIA [None]
  - DEPRESSION [None]
  - DRUG INEFFECTIVE [None]
  - FALL [None]
  - LACERATION [None]
  - PAIN IN EXTREMITY [None]
  - SPINAL COMPRESSION FRACTURE [None]
  - THERAPY NON-RESPONDER [None]
